FAERS Safety Report 4958939-4 (Version None)
Quarter: 2006Q1

REPORT INFORMATION
  Report Type: 
  Country: None (occurrence: None)
  Receive Date: 20060324
  Receipt Date: 20060315
  Transmission Date: 20060701
  Serious: Yes (Hospitalization, Other)
  Sender: FDA-Public Use
  Company Number: HQWYE355416MAR06

PATIENT
  Age: 28 Year
  Sex: Female
  Weight: 68.9 kg

DRUGS (3)
  1. MYLOTARG [Suspect]
     Indication: ACUTE MYELOID LEUKAEMIA
     Dosage: A SINGLE 6 MG/M^2 DOSE, INTRAVENOUS
     Route: 042
     Dates: start: 20050513, end: 20050513
  2. CYTARABINE [Suspect]
     Indication: ACUTE MYELOID LEUKAEMIA
     Dosage: 100 MG/M^2 PER DAY (TOTAL CUMULATIVE DOSE 160 MG), INTRAVENOUS
     Route: 042
     Dates: start: 20050510, end: 20050510
  3. DAUNOMYCIN (DAUNORUBICIN,) [Suspect]
     Indication: ACUTE MYELOID LEUKAEMIA
     Dosage: 45 MG/M^2 (TOTAL CUMULATIVE DOSE 72 MG), INTRAVENOUS
     Route: 042
     Dates: start: 20050510, end: 20050510

REACTIONS (14)
  - BACTERIA BLOOD IDENTIFIED [None]
  - BACTERIAL INFECTION [None]
  - CHOLECYSTITIS [None]
  - CULTURE POSITIVE [None]
  - DISSEMINATED INTRAVASCULAR COAGULATION [None]
  - ENTEROCOCCAL INFECTION [None]
  - HAEMATOCRIT DECREASED [None]
  - HAEMOGLOBIN DECREASED [None]
  - KLEBSIELLA INFECTION [None]
  - NEUTROPENIC SEPSIS [None]
  - OVARIAN DISORDER [None]
  - PLATELET COUNT DECREASED [None]
  - PULMONARY EMBOLISM [None]
  - THROMBOSIS [None]
